FAERS Safety Report 8031188-1 (Version None)
Quarter: 2012Q1

REPORT INFORMATION
  Report Type: 
  Country: None (occurrence: None)
  Receive Date: 20120109
  Receipt Date: 20120103
  Transmission Date: 20120608
  Serious: Yes (Hospitalization)
  Sender: FDA-Public Use
  Company Number: US-AMGEN-USASP2012000235

PATIENT
  Age: 54 Year
  Sex: Male

DRUGS (1)
  1. ENBREL [Suspect]
     Indication: RHEUMATOID ARTHRITIS
     Dosage: 50 MG, QWK
     Dates: start: 19991201

REACTIONS (7)
  - JOINT ADHESION [None]
  - VIRAL INFECTION [None]
  - RHEUMATOID ARTHRITIS [None]
  - RIB FRACTURE [None]
  - CARDIAC ARREST [None]
  - UPPER RESPIRATORY TRACT INFECTION [None]
  - ROAD TRAFFIC ACCIDENT [None]
